FAERS Safety Report 15686811 (Version 1)
Quarter: 2018Q4

REPORT INFORMATION
  Report Type: Report from Study
  Country: US (occurrence: US)
  Receive Date: 20181204
  Receipt Date: 20181204
  Transmission Date: 20190205
  Serious: Yes (Other)
  Sender: FDA-Public Use
  Company Number: US-GILEAD-2018-0378182

PATIENT
  Age: 70 Year
  Sex: Female

DRUGS (3)
  1. RANOLAZINE. [Suspect]
     Active Substance: RANOLAZINE
     Indication: ANGINA PECTORIS
     Dosage: 500 MG, BID
     Route: 048
     Dates: start: 2017
  2. ELIQUIS [Suspect]
     Active Substance: APIXABAN
     Indication: CARDIAC DISORDER
     Dosage: 5 MG, BID
     Route: 048
  3. VITAMIN E AL [Suspect]
     Active Substance: TOCOPHEROL
     Indication: IRON DEFICIENCY
     Dosage: 50 MG, BID
     Route: 048

REACTIONS (4)
  - Chest pain [Not Recovered/Not Resolved]
  - Vitamin E decreased [Not Recovered/Not Resolved]
  - Haemoglobin decreased [Not Recovered/Not Resolved]
  - Emotional disorder [Not Recovered/Not Resolved]
